FAERS Safety Report 20020468 (Version 1)
Quarter: 2021Q4

REPORT INFORMATION
  Report Type: Spontaneous
  Country: DE (occurrence: DE)
  Receive Date: 20211101
  Receipt Date: 20211101
  Transmission Date: 20220303
  Serious: Yes (Death, Hospitalization)
  Sender: FDA-Public Use
  Company Number: DE-BRISTOL-MYERS SQUIBB COMPANY-BMS-2020-067944

PATIENT
  Age: 63 Year
  Sex: Male
  Weight: 56 kg

DRUGS (12)
  1. PREGABALIN [Suspect]
     Active Substance: PREGABALIN
     Indication: Toxic neuropathy
  2. GABAPENTIN [Suspect]
     Active Substance: GABAPENTIN
     Indication: Product used for unknown indication
  3. GABAPENTIN [Suspect]
     Active Substance: GABAPENTIN
     Indication: Toxic neuropathy
     Dosage: 900-600-900 MG
  4. NIVOLUMAB [Suspect]
     Active Substance: NIVOLUMAB
     Indication: Squamous cell carcinoma of head and neck
     Dates: start: 20200729, end: 20210604
  5. PREGABALIN [Concomitant]
     Active Substance: PREGABALIN
     Indication: Product used for unknown indication
     Dosage: UNK
     Dates: start: 20210608
  6. PANTOPRAZOLE [Concomitant]
     Active Substance: PANTOPRAZOLE
     Indication: Prophylaxis
  7. FORMOTEROL [Concomitant]
     Active Substance: FORMOTEROL
     Indication: Lung disorder
  8. QUININE SULFATE [Concomitant]
     Active Substance: QUININE SULFATE
     Indication: Product used for unknown indication
  9. CHOLECALCIFEROL [Concomitant]
     Active Substance: CHOLECALCIFEROL
     Indication: Product used for unknown indication
     Dosage: UNK (1 CAPSULE EVERY 14 DAYS)
  10. METAMIZOLE [Concomitant]
     Active Substance: METAMIZOLE
     Indication: Product used for unknown indication
  11. METAMIZOLE [Concomitant]
     Active Substance: METAMIZOLE
     Dosage: UNK (GTT DROPS, PRN)
  12. OXYCODONE [Concomitant]
     Active Substance: OXYCODONE
     Indication: Product used for unknown indication

REACTIONS (13)
  - Malignant neoplasm progression [Fatal]
  - Hypothyroidism [Unknown]
  - Hypokalaemia [Recovering/Resolving]
  - Toxic neuropathy [Unknown]
  - Delirium [Unknown]
  - Neck pain [Unknown]
  - Headache [Unknown]
  - Agitation [Unknown]
  - Disturbance in attention [Recovering/Resolving]
  - Restlessness [Not Recovered/Not Resolved]
  - Somnolence [Unknown]
  - Fear [Unknown]
  - Hypocalcaemia [Unknown]

NARRATIVE: CASE EVENT DATE: 20200730
